FAERS Safety Report 19127283 (Version 1)
Quarter: 2021Q2

REPORT INFORMATION
  Report Type: Spontaneous
  Country: US (occurrence: US)
  Receive Date: 20210413
  Receipt Date: 20210413
  Transmission Date: 20210717
  Serious: No
  Sender: FDA-Public Use
  Company Number: US-ALLERGAN-2018776US

PATIENT
  Age: 41 Year
  Sex: Female

DRUGS (2)
  1. LATISSE [Suspect]
     Active Substance: BIMATOPROST
     Indication: GROWTH OF EYELASHES
     Dosage: 2 GTT, QHS
     Route: 061
     Dates: start: 20200218, end: 202004
  2. LATISSE APPLICATOR [DEVICE] [Suspect]
     Active Substance: DEVICE

REACTIONS (3)
  - Madarosis [Recovered/Resolved]
  - Drug ineffective [Unknown]
  - Eyelids pruritus [Recovered/Resolved]

NARRATIVE: CASE EVENT DATE: 202004
